FAERS Safety Report 13209375 (Version 1)
Quarter: 2017Q1

REPORT INFORMATION
  Report Type: Spontaneous
  Country: KW (occurrence: KW)
  Receive Date: 20170209
  Receipt Date: 20170209
  Transmission Date: 20170428
  Serious: Yes (Death, Other)
  Sender: FDA-Public Use
  Company Number: KW-ABBVIE-17P-091-1857185-00

PATIENT
  Age: 1 Day
  Sex: Male
  Weight: 1.2 kg

DRUGS (1)
  1. SURVANTA [Suspect]
     Active Substance: BERACTANT
     Indication: ACUTE RESPIRATORY DISTRESS SYNDROME
     Dosage: ROUTE: INTRATRACHEALLY
     Route: 050
     Dates: start: 20170127, end: 20170127

REACTIONS (3)
  - Pulmonary interstitial emphysema syndrome [Fatal]
  - Pulmonary haemorrhage [Fatal]
  - Adverse event [Fatal]
